FAERS Safety Report 5414599-X (Version None)
Quarter: 2007Q3

REPORT INFORMATION
  Report Type: 
  Country: None (occurrence: None)
  Receive Date: 20070813
  Receipt Date: 20070731
  Transmission Date: 20080115
  Serious: Yes (Hospitalization, Other)
  Sender: FDA-Public Use
  Company Number: 2007US001809

PATIENT
  Age: 47 Year
  Sex: Male

DRUGS (2)
  1. PROGRAF [Suspect]
     Indication: PROPHYLAXIS AGAINST TRANSPLANT REJECTION
  2. CYCLOSPORINE [Concomitant]

REACTIONS (6)
  - BEZOAR [None]
  - DIARRHOEA HAEMORRHAGIC [None]
  - GASTROINTESTINAL DISORDER [None]
  - GASTROINTESTINAL HAEMORRHAGE [None]
  - IMPAIRED GASTRIC EMPTYING [None]
  - VAGUS NERVE DISORDER [None]
